FAERS Safety Report 4436390-3 (Version None)
Quarter: 2004Q3

REPORT INFORMATION
  Report Type: 
  Country: None (occurrence: None)
  Receive Date: 20040830
  Receipt Date: 20040503
  Transmission Date: 20050211
  Serious: No
  Sender: FDA-Public Use
  Company Number: US-BRISTOL-MYERS SQUIBB COMPANY-12577581

PATIENT
  Sex: Female

DRUGS (4)
  1. ABILIFY [Suspect]
     Indication: DEPRESSION
     Dosage: 30 MG JAN-04 DECREASED TO 15 MG APPROXIMATELY 3 WEEKS AGO.
     Dates: start: 20040101
  2. LOMOTIL [Concomitant]
  3. CELEXA [Concomitant]
  4. WELLBUTRIN [Concomitant]

REACTIONS (5)
  - APATHY [None]
  - LETHARGY [None]
  - PSYCHOMOTOR HYPERACTIVITY [None]
  - SOMNOLENCE [None]
  - TRANCE [None]
